FAERS Safety Report 25192881 (Version 1)
Quarter: 2025Q2

REPORT INFORMATION
  Report Type: Spontaneous
  Country: US (occurrence: US)
  Receive Date: 20250414
  Receipt Date: 20250414
  Transmission Date: 20250717
  Serious: Yes (Death, Other)
  Sender: NOVARTIS
  Company Number: US-002147023-NVSC2025US061346

PATIENT
  Age: 8 Year
  Sex: Female

DRUGS (1)
  1. RIBOCICLIB [Suspect]
     Active Substance: RIBOCICLIB
     Indication: Brain stem glioma
     Route: 065

REACTIONS (3)
  - Brain stem glioma [Fatal]
  - Malignant neoplasm progression [Fatal]
  - Off label use [Unknown]
